FAERS Safety Report 20986633 (Version 12)
Quarter: 2023Q1

REPORT INFORMATION
  Report Type: Spontaneous
  Country: CO (occurrence: CO)
  Receive Date: 20220621
  Receipt Date: 20230203
  Transmission Date: 20230417
  Serious: Yes (Other)
  Sender: FDA-Public Use
  Company Number: CO-GLAXOSMITHKLINE-CO2022AMR093982

PATIENT

DRUGS (10)
  1. MEPOLIZUMAB [Suspect]
     Active Substance: MEPOLIZUMAB
     Indication: Asthma
     Dosage: 100 MG
     Dates: start: 20210131
  2. MEPOLIZUMAB [Suspect]
     Active Substance: MEPOLIZUMAB
     Dosage: 100 MG, Z MONTHLY
     Dates: start: 20210131
  3. MEPOLIZUMAB [Suspect]
     Active Substance: MEPOLIZUMAB
     Dosage: 100 MG, Z MONTHLY
     Dates: start: 20210131, end: 20221231
  4. MONTELUKAST [Concomitant]
     Active Substance: MONTELUKAST SODIUM
     Indication: Product used for unknown indication
     Dosage: 10 MG, QD (EVERY 24 HOURS)
  5. METFORMIN [Concomitant]
     Active Substance: METFORMIN HYDROCHLORIDE
     Indication: Product used for unknown indication
     Dosage: 850 MG, QD (EVERY 24 HOURS)
  6. LANTUS [Concomitant]
     Active Substance: INSULIN GLARGINE
     Indication: Hyperglycaemia
     Dosage: UNK, 10 UI
     Route: 058
  7. LANTUS [Concomitant]
     Active Substance: INSULIN GLARGINE
     Indication: Hyperglycaemic crisis
  8. FENOTEROL HYDROBROMIDE\IPRATROPIUM BROMIDE [Concomitant]
     Active Substance: FENOTEROL HYDROBROMIDE\IPRATROPIUM BROMIDE
     Indication: Product used for unknown indication
     Dosage: UNK
  9. SERETIDE [Concomitant]
     Active Substance: FLUTICASONE PROPIONATE\SALMETEROL XINAFOATE
     Indication: Product used for unknown indication
     Dosage: 1 PUFF(S), BID (EVERY 12 HOURS)
  10. ALBUTEROL [Concomitant]
     Active Substance: ALBUTEROL
     Indication: Product used for unknown indication
     Dosage: 1 PUFF(S), BID (EVERY 12 HOUR)

REACTIONS (18)
  - Asthmatic crisis [Recovered/Resolved]
  - Respiratory distress [Recovered/Resolved]
  - Respiratory tract infection [Recovered/Resolved]
  - Viral infection [Not Recovered/Not Resolved]
  - Pyrexia [Recovered/Resolved]
  - Rhinorrhoea [Recovered/Resolved]
  - Productive cough [Recovered/Resolved]
  - Chest pain [Recovered/Resolved]
  - Back pain [Recovered/Resolved]
  - Malaise [Recovered/Resolved]
  - Nasal congestion [Recovering/Resolving]
  - Influenza like illness [Not Recovered/Not Resolved]
  - Cough [Recovered/Resolved]
  - Sputum purulent [Recovered/Resolved]
  - Dyspnoea [Not Recovered/Not Resolved]
  - Headache [Recovered/Resolved]
  - Drug ineffective for unapproved indication [Unknown]
  - Product use in unapproved indication [Not Recovered/Not Resolved]

NARRATIVE: CASE EVENT DATE: 20220531
